FAERS Safety Report 14260616 (Version 8)
Quarter: 2020Q2

REPORT INFORMATION
  Report Type: Report from Study
  Country: TW (occurrence: TW)
  Receive Date: 20171207
  Receipt Date: 20200430
  Transmission Date: 20200713
  Serious: Yes (Hospitalization, Other)
  Sender: FDA-Public Use
  Company Number: TW-INCYTE CORPORATION-2017IN010326

PATIENT

DRUGS (21)
  1. JAKAVI [Suspect]
     Active Substance: RUXOLITINIB
     Dosage: 20 MG, UNK
     Route: 048
     Dates: start: 20170426, end: 20180422
  2. ANIDULAFUNGIN [Concomitant]
     Active Substance: ANIDULAFUNGIN
     Indication: SEPSIS
     Dosage: 100 MG
     Route: 042
     Dates: start: 20181216, end: 20181218
  3. CEFIXIME;LINEZOLID [Concomitant]
     Indication: URINARY TRACT INFECTION
     Dosage: 200 MG
     Route: 048
     Dates: start: 20180830, end: 20180904
  4. CEFTRIAXONE;TAZOBACTAM [Concomitant]
     Dosage: 1 G
     Route: 042
     Dates: start: 20190614, end: 20190617
  5. ACETHYL CYSTEINE [Concomitant]
     Active Substance: ACETYLCYSTEINE
     Indication: PRODUCT USED FOR UNKNOWN INDICATION
     Dosage: 600 MG
     Route: 048
     Dates: start: 20190802, end: 20190819
  6. CEFUROXIME;ORNIDAZOLE [Concomitant]
     Indication: CYSTITIS
     Dosage: 250 MG
     Route: 048
     Dates: start: 20190618, end: 20190625
  7. CLONAZEPAM. [Concomitant]
     Active Substance: CLONAZEPAM
     Indication: INSOMNIA
     Dosage: 0.5 MG
     Route: 048
     Dates: start: 20160420
  8. CEFEPIME [Concomitant]
     Active Substance: CEFEPIME HYDROCHLORIDE
     Indication: SEPSIS
     Dosage: 2 G
     Route: 042
     Dates: start: 20181128, end: 20181215
  9. ESTAZOLAM. [Concomitant]
     Active Substance: ESTAZOLAM
     Indication: INSOMNIA
     Dosage: 2 MG
     Route: 048
     Dates: start: 20150706
  10. JAKAVI [Suspect]
     Active Substance: RUXOLITINIB
     Dosage: 40 MG
     Route: 048
     Dates: start: 20180423
  11. CEFEPIME [Concomitant]
     Active Substance: CEFEPIME HYDROCHLORIDE
     Indication: URINARY TRACT INFECTION
     Dosage: 2 G
     Route: 042
     Dates: start: 20180827, end: 20180830
  12. PREGABALIN. [Concomitant]
     Active Substance: PREGABALIN
     Indication: POST HERPETIC NEURALGIA
     Dosage: 75 MG
     Route: 048
     Dates: start: 20180814
  13. ACETAMINOPHEN;DEXTROPROPOXYPHENE [Concomitant]
     Indication: SEPSIS
     Dosage: 500 MILLIGRAM
     Route: 048
     Dates: start: 20181127, end: 20181202
  14. GABAPENTIN;MELOXICAM [Concomitant]
     Indication: POST HERPETIC NEURALGIA
     Dosage: 400 MG
     Route: 048
     Dates: start: 20180611, end: 20180813
  15. JAKAVI [Suspect]
     Active Substance: RUXOLITINIB
     Indication: PRIMARY MYELOFIBROSIS
     Dosage: 10 MG, UNK
     Route: 048
     Dates: start: 20170412, end: 20170425
  16. CEFEPIME [Concomitant]
     Active Substance: CEFEPIME HYDROCHLORIDE
     Dosage: 2 G
     Route: 042
     Dates: start: 20190802, end: 20190806
  17. FAMOTIDINE. [Concomitant]
     Active Substance: FAMOTIDINE
     Indication: IRRITABLE BOWEL SYNDROME
     Dosage: 20 MG
     Route: 048
     Dates: start: 20150706, end: 20171025
  18. QUTIAPINE [Concomitant]
     Indication: PERSISTENT DEPRESSIVE DISORDER
     Route: 065
  19. BENZONATATE. [Concomitant]
     Active Substance: BENZONATATE
     Indication: PRODUCT USED FOR UNKNOWN INDICATION
     Dosage: 100 MG
     Route: 048
     Dates: start: 20190802, end: 20190815
  20. CEFTRIAXONE;TAZOBACTAM [Concomitant]
     Indication: SEPSIS
     Dosage: 1 G
     Route: 042
     Dates: start: 20181127, end: 20181128
  21. DULOXETINE. [Concomitant]
     Active Substance: DULOXETINE
     Indication: GENERALISED ANXIETY DISORDER
     Dosage: 30 MG
     Route: 048
     Dates: start: 20140811, end: 20171025

REACTIONS (4)
  - Herpes zoster [Recovered/Resolved]
  - Bronchitis bacterial [Recovered/Resolved]
  - Pyrexia [Recovered/Resolved]
  - Productive cough [Recovered/Resolved]

NARRATIVE: CASE EVENT DATE: 20171116
